FAERS Safety Report 14007043 (Version 1)
Quarter: 2017Q3

REPORT INFORMATION
  Report Type: Spontaneous
  Country: US (occurrence: US)
  Receive Date: 20170922
  Receipt Date: 20170922
  Transmission Date: 20171128
  Serious: Yes (Other)
  Sender: FDA-Public Use
  Company Number: None

PATIENT
  Age: 65 Year
  Sex: Female
  Weight: 76.5 kg

DRUGS (19)
  1. LAMICTAL [Suspect]
     Active Substance: LAMOTRIGINE
     Indication: SEIZURE
     Dosage: ?          QUANTITY:3 TABLET(S);?
     Route: 048
  2. LEXAPRO [Concomitant]
     Active Substance: ESCITALOPRAM OXALATE
  3. IRON [Concomitant]
     Active Substance: IRON
  4. VITAMIN B COMPLEX [Concomitant]
     Active Substance: CYANOCOBALAMIN\DEXPANTHENOL\NIACINAMIDE\PYRIDOXINE HYDROCHLORIDE\RIBOFLAVIN 5^-PHOSPHATE SODIUM\THIAMINE HYDROCHLORIDE\VITAMIN B COMPLEX
  5. CANE [Concomitant]
  6. LIPITOR [Concomitant]
     Active Substance: ATORVASTATIN CALCIUM
  7. WELLBUTRIN PRAZOSIN [Concomitant]
  8. TROSPIUM FOR PTSD [Concomitant]
  9. OMEPRAZOL [Concomitant]
     Active Substance: OMEPRAZOLE
  10. VITAMIN D3 [Concomitant]
     Active Substance: CHOLECALCIFEROL
  11. FOLIC ACID. [Concomitant]
     Active Substance: FOLIC ACID
  12. ATENOLOL. [Concomitant]
     Active Substance: ATENOLOL
  13. NAPROXEN. [Concomitant]
     Active Substance: NAPROXEN
  14. MAGNESIUM [Concomitant]
     Active Substance: MAGNESIUM
  15. INTERSTIM BLADDER PACEMAKER [Concomitant]
  16. KLONOPIN [Concomitant]
     Active Substance: CLONAZEPAM
  17. PROBIOTICS [Concomitant]
     Active Substance: PROBIOTICS NOS
  18. CARDIAC PACEMAKER [Concomitant]
  19. BABY ASPIRIN [Concomitant]
     Active Substance: ASPIRIN

REACTIONS (2)
  - Amnesia [None]
  - Meningitis aseptic [None]

NARRATIVE: CASE EVENT DATE: 20170601
